FAERS Safety Report 17966076 (Version 1)
Quarter: 2020Q2

REPORT INFORMATION
  Report Type: Spontaneous
  Country: US (occurrence: US)
  Receive Date: 20200630
  Receipt Date: 20200630
  Transmission Date: 20200714
  Serious: Yes (Hospitalization, Other)
  Sender: FDA-Public Use
  Company Number: US-GLAXOSMITHKLINE-US2020GSK106141

PATIENT
  Age: 2 Day
  Sex: Male

DRUGS (3)
  1. ACYCLOVIR. [Suspect]
     Active Substance: ACYCLOVIR
     Indication: PRODUCT USED FOR UNKNOWN INDICATION
     Dosage: UNK
     Route: 064
  2. ALPRAZOLAM. [Suspect]
     Active Substance: ALPRAZOLAM
     Indication: PRODUCT USED FOR UNKNOWN INDICATION
     Dosage: UNK
     Route: 064
  3. QUETIAPINE. [Suspect]
     Active Substance: QUETIAPINE
     Indication: PRODUCT USED FOR UNKNOWN INDICATION
     Dosage: UNK
     Route: 064

REACTIONS (15)
  - Clonus [Unknown]
  - Tonic posturing [Unknown]
  - Amino acid level increased [Unknown]
  - Amino acid level decreased [Unknown]
  - Epilepsy [Unknown]
  - Somnolence neonatal [Unknown]
  - Hypothermia neonatal [Unknown]
  - Neonatal tachypnoea [Unknown]
  - Mental disorder [Unknown]
  - Argininosuccinate synthetase deficiency [Unknown]
  - Foetal exposure during pregnancy [Unknown]
  - Live birth [Unknown]
  - Ammonia increased [Unknown]
  - Urea cycle disorder [Unknown]
  - Encephalopathy neonatal [Unknown]
